FAERS Safety Report 7108461-4 (Version None)
Quarter: 2010Q4

REPORT INFORMATION
  Report Type: 
  Country: None (occurrence: None)
  Receive Date: 20101117
  Receipt Date: 20101108
  Transmission Date: 20110411
  Serious: Yes (Other)
  Sender: FDA-Public Use
  Company Number: B0684684A

PATIENT
  Age: 48 Year
  Sex: Female

DRUGS (2)
  1. AUGMENTIN '125' [Suspect]
     Indication: PROPHYLAXIS
     Dosage: 2G PER DAY
     Route: 048
     Dates: start: 20101028, end: 20101102
  2. PONSTAN [Concomitant]
     Route: 048
     Dates: start: 20101031, end: 20101031

REACTIONS (5)
  - ABDOMINAL PAIN [None]
  - DIARRHOEA [None]
  - HAEMATOCHEZIA [None]
  - NAUSEA [None]
  - VOMITING [None]
